FAERS Safety Report 5710123-2 (Version None)
Quarter: 2008Q2

REPORT INFORMATION
  Report Type: 
  Country: None (occurrence: None)
  Receive Date: 20080418
  Receipt Date: 20071101
  Transmission Date: 20081010
  Serious: No
  Sender: FDA-Public Use
  Company Number: US-ASTRAZENECA-2007UW25456

PATIENT
  Sex: Female

DRUGS (2)
  1. TOPROL-XL [Suspect]
     Route: 048
  2. MICARDIS HCT [Suspect]

REACTIONS (9)
  - ALOPECIA [None]
  - ASTHENIA [None]
  - DRY MOUTH [None]
  - EAR PAIN [None]
  - FATIGUE [None]
  - FOOD CRAVING [None]
  - HEADACHE [None]
  - PAIN IN EXTREMITY [None]
  - TENSION HEADACHE [None]
